FAERS Safety Report 26133144 (Version 1)
Quarter: 2025Q4

REPORT INFORMATION
  Report Type: Spontaneous
  Country: US (occurrence: US)
  Receive Date: 20251209
  Receipt Date: 20251209
  Transmission Date: 20260119
  Serious: Yes (Hospitalization, Other)
  Sender: SPECGX
  Company Number: US-SPECGX-T202501936

PATIENT
  Age: 73 Year
  Sex: Male

DRUGS (1)
  1. HYDROMORPHONE [Suspect]
     Active Substance: HYDROMORPHONE
     Indication: Cancer pain
     Dosage: 2 MILLIGRAM, PRN (TWICE A DAY)
     Route: 065

REACTIONS (9)
  - Pneumonia [Unknown]
  - Failure to thrive [Unknown]
  - Odynophagia [Unknown]
  - Pneumonia aspiration [Unknown]
  - Dysphagia [Unknown]
  - Gastrointestinal tube insertion [Unknown]
  - Aphasia [Unknown]
  - Oropharyngeal pain [Unknown]
  - Neck pain [Unknown]
